FAERS Safety Report 6859892-9 (Version None)
Quarter: 2010Q3

REPORT INFORMATION
  Report Type: 
  Country: None (occurrence: None)
  Receive Date: 20100720
  Receipt Date: 20100713
  Transmission Date: 20110219
  Serious: Yes (Death, Life-Threatening, Hospitalization)
  Sender: FDA-Public Use
  Company Number: ID-BAYER-201023748GPV

PATIENT
  Age: 37 Year
  Sex: Female
  Weight: 40 kg

DRUGS (34)
  1. SORAFENIB [Suspect]
     Indication: NON-SMALL CELL LUNG CANCER
     Route: 048
     Dates: start: 20100417, end: 20100426
  2. TRIOFUSIN 1000 [Concomitant]
     Route: 042
     Dates: start: 20100429, end: 20100430
  3. TRIOFUSIN 500 [Concomitant]
     Route: 042
     Dates: start: 20100501, end: 20100501
  4. CEFTRIAXONE [Concomitant]
     Route: 042
     Dates: start: 20100426, end: 20100429
  5. KAEN 3B [Concomitant]
     Route: 042
     Dates: start: 20100430, end: 20100505
  6. CHOLINAAR [Concomitant]
     Route: 042
     Dates: start: 20100427, end: 20100505
  7. AMINOPHYLLINE [Concomitant]
     Dosage: 2 AMPS
     Route: 042
     Dates: start: 20100429, end: 20100505
  8. LEVOFLOXACIN [Concomitant]
     Route: 042
     Dates: start: 20100429, end: 20100429
  9. MEDIXON [Concomitant]
     Route: 042
     Dates: start: 20100429, end: 20100430
  10. MEDIXON [Concomitant]
     Route: 042
     Dates: start: 20100501, end: 20100505
  11. MAGNESIUM SULFATE [Concomitant]
     Dosage: IN NORMAL SALINE 0.9%
     Route: 042
     Dates: start: 20100430, end: 20100505
  12. CORDARONE [Concomitant]
     Route: 042
     Dates: start: 20100430, end: 20100505
  13. CALCIUM GLUCONATE [Concomitant]
     Dosage: 1 AMPULE
     Route: 042
     Dates: start: 20100430, end: 20100505
  14. LAXADINE [Concomitant]
     Route: 048
     Dates: start: 20100430, end: 20100505
  15. OMZ [Concomitant]
     Route: 042
     Dates: start: 20100501, end: 20100505
  16. MO [Concomitant]
     Route: 042
     Dates: start: 20100504, end: 20100505
  17. MO [Concomitant]
     Route: 042
     Dates: start: 20100502, end: 20100503
  18. RL [Concomitant]
     Route: 042
     Dates: start: 20100503, end: 20100503
  19. KAEN MG [Concomitant]
     Route: 042
     Dates: start: 20100504, end: 20100504
  20. ASERING [Concomitant]
     Route: 042
     Dates: start: 20100504, end: 20100504
  21. SALAKINASE [Concomitant]
     Route: 048
     Dates: start: 20100503, end: 20100505
  22. DIGOXIN [Concomitant]
     Route: 048
     Dates: start: 20100503, end: 20100505
  23. CEDOCARD [Concomitant]
     Route: 048
     Dates: start: 20100504, end: 20100505
  24. CAPTOPRIL [Concomitant]
     Route: 048
     Dates: start: 20100504, end: 20100505
  25. MAINTATE [Concomitant]
     Route: 048
     Dates: start: 20100504, end: 20100505
  26. VASCON [Concomitant]
     Route: 042
     Dates: start: 20100501, end: 20100501
  27. VASCON [Concomitant]
     Route: 042
     Dates: start: 20100501, end: 20100502
  28. VASCON [Concomitant]
     Route: 042
     Dates: start: 20100503, end: 20100505
  29. ATROPINE [Concomitant]
     Dosage: 1 AMPULE
     Route: 042
     Dates: start: 20100501, end: 20100501
  30. EPINEPHRINE [Concomitant]
     Dosage: 1 AMPULE
     Route: 042
     Dates: start: 20100501, end: 20100501
  31. BISOLVON [Concomitant]
     Dosage: 4 AMPULE
     Route: 055
     Dates: start: 20100501, end: 20100505
  32. BISOLVON [Concomitant]
     Dosage: 3 AMPULE
     Route: 055
     Dates: start: 20100429, end: 20100430
  33. VENTOLIN [Concomitant]
     Dosage: 4 AMPULE
     Route: 055
     Dates: start: 20100501, end: 20100505
  34. VENTOLIN [Concomitant]
     Dosage: 3 AMPULE
     Route: 055
     Dates: start: 20100429, end: 20100430

REACTIONS (8)
  - APNOEA [None]
  - BLOOD PRESSURE DECREASED [None]
  - CONFUSIONAL STATE [None]
  - DISORIENTATION [None]
  - DYSPNOEA [None]
  - ELECTROLYTE IMBALANCE [None]
  - SEPSIS [None]
  - VOMITING [None]
